FAERS Safety Report 24731716 (Version 1)
Quarter: 2024Q4

REPORT INFORMATION
  Report Type: Spontaneous
  Country: US (occurrence: None)
  Receive Date: 20241213
  Receipt Date: 20241213
  Transmission Date: 20250114
  Serious: Yes (Life-Threatening, Hospitalization)
  Sender: Public
  Company Number: None

PATIENT
  Age: 37 Year
  Sex: Male

DRUGS (1)
  1. CEFTRIAXONE SODIUM [Suspect]
     Active Substance: CEFTRIAXONE SODIUM
     Indication: Urinary tract infection
     Dosage: OTHER FREQUENCY : ONCE;?
     Route: 042
     Dates: start: 20240928, end: 20240928

REACTIONS (4)
  - Anaphylactic reaction [None]
  - Cardiac arrest [None]
  - Erythema multiforme [None]
  - Hypotension [None]

NARRATIVE: CASE EVENT DATE: 20240928
